FAERS Safety Report 4579912-4 (Version None)
Quarter: 2005Q1

REPORT INFORMATION
  Report Type: 
  Country: None (occurrence: None)
  Receive Date: 20050210
  Receipt Date: 20050126
  Transmission Date: 20050727
  Serious: Yes (Death, Hospitalization)
  Sender: FDA-Public Use
  Company Number: 2004AL000677

PATIENT
  Age: 30 Year
  Sex: Female

DRUGS (2)
  1. TIZANIDINE HCL [Suspect]
     Dosage: PO
     Route: 048
  2. VALPROIC ACID [Suspect]
     Dosage: PO
     Route: 048

REACTIONS (8)
  - BRADYCARDIA [None]
  - CARDIO-RESPIRATORY ARREST [None]
  - COMA [None]
  - COMPLETED SUICIDE [None]
  - HAEMODIALYSIS [None]
  - HYPOTENSION [None]
  - INTENTIONAL MISUSE [None]
  - MENTAL STATUS CHANGES [None]
